FAERS Safety Report 21643133 (Version 1)
Quarter: 2022Q4

REPORT INFORMATION
  Report Type: Spontaneous
  Country: ES (occurrence: ES)
  Receive Date: 20221125
  Receipt Date: 20221125
  Transmission Date: 20230112
  Serious: Yes (Other)
  Sender: FDA-Public Use
  Company Number: ES-drreddys-LIT/SPN/22/0157434

PATIENT
  Age: 47 Year
  Sex: Female

DRUGS (6)
  1. CINACALCET [Suspect]
     Active Substance: CINACALCET
     Indication: Hyperparathyroidism secondary
  2. CINACALCET [Suspect]
     Active Substance: CINACALCET
     Dosage: PROGRESSIVELY INCREASED CALCIMIMETIC DOSE
  3. SODIUM THIOSULFATE [Concomitant]
     Active Substance: SODIUM THIOSULFATE
     Indication: Arthropathy
  4. ENOXAPARIN SODIUM [Concomitant]
     Active Substance: ENOXAPARIN SODIUM
     Indication: Product used for unknown indication
  5. VANCOMYCIN [Concomitant]
     Active Substance: VANCOMYCIN
     Indication: Antibiotic therapy
  6. CEFTAZIDIME [Concomitant]
     Active Substance: CEFTAZIDIME
     Indication: Antibiotic therapy

REACTIONS (4)
  - Skin lesion [Recovered/Resolved]
  - Disease progression [Recovered/Resolved]
  - Blood parathyroid hormone increased [Unknown]
  - Drug ineffective [Unknown]
